FAERS Safety Report 17389658 (Version 1)
Quarter: 2020Q1

REPORT INFORMATION
  Report Type: Spontaneous
  Country: FR (occurrence: FR)
  Receive Date: 20200207
  Receipt Date: 20200207
  Transmission Date: 20200409
  Serious: Yes (Hospitalization)
  Sender: FDA-Public Use
  Company Number: FR-PFIZER INC-2020049340

PATIENT
  Age: 46 Year
  Sex: Female
  Weight: 63.3 kg

DRUGS (1)
  1. SALAZOPYRINE [Suspect]
     Active Substance: SULFASALAZINE
     Indication: RHEUMATOID ARTHRITIS
     Dosage: UNK
     Route: 048
     Dates: start: 201906, end: 20190710

REACTIONS (1)
  - Myelitis [Recovering/Resolving]

NARRATIVE: CASE EVENT DATE: 20190801
